FAERS Safety Report 4954673-5 (Version None)
Quarter: 2006Q1

REPORT INFORMATION
  Report Type: 
  Country: None (occurrence: None)
  Receive Date: 20060322
  Receipt Date: 20060316
  Transmission Date: 20060701
  Serious: Yes (Hospitalization, Other)
  Sender: FDA-Public Use
  Company Number: 200610134BVD

PATIENT
  Age: 63 Year
  Sex: Female
  Weight: 87 kg

DRUGS (10)
  1. SORAFENIB [Suspect]
     Indication: METASTATIC RENAL CELL CARCINOMA
     Dosage: 400 MG, BID, ORAL
     Route: 048
     Dates: start: 20050901
  2. CARMEN [Concomitant]
  3. L-THYROXIN [Concomitant]
  4. TORSEMIDE [Concomitant]
  5. EUNOVA [Concomitant]
  6. EUCERIN CREME [Concomitant]
  7. HYDROCHLOROTHIAZIDE [Concomitant]
  8. MOXONIDIN [Concomitant]
  9. RAMIPRIL [Concomitant]
  10. PANTOZOL [Concomitant]

REACTIONS (11)
  - BLOOD CALCIUM DECREASED [None]
  - BLOOD CREATINE PHOSPHOKINASE MB INCREASED [None]
  - BLOOD GLUCOSE INCREASED [None]
  - BLOOD POTASSIUM DECREASED [None]
  - BLOOD SODIUM DECREASED [None]
  - DIZZINESS [None]
  - HYPERTENSIVE HEART DISEASE [None]
  - HYPERTONIA [None]
  - LOSS OF CONSCIOUSNESS [None]
  - NAUSEA [None]
  - SYNCOPE [None]
